FAERS Safety Report 4913365-9 (Version None)
Quarter: 2006Q1

REPORT INFORMATION
  Report Type: 
  Country: None (occurrence: None)
  Receive Date: 20060215
  Receipt Date: 20050401
  Transmission Date: 20060701
  Serious: Yes (Hospitalization)
  Sender: FDA-Public Use
  Company Number: US-MERCK-0504USA00482

PATIENT
  Age: 70 Year
  Sex: Male
  Weight: 109 kg

DRUGS (1)
  1. VIOXX [Suspect]
     Indication: ARTHRITIS
     Route: 048
     Dates: start: 20011130, end: 20020619

REACTIONS (2)
  - CEREBROVASCULAR ACCIDENT [None]
  - SKELETAL INJURY [None]
